FAERS Safety Report 4865636-2 (Version None)
Quarter: 2005Q4

REPORT INFORMATION
  Report Type: 
  Country: None (occurrence: None)
  Receive Date: 20051220
  Receipt Date: 20051205
  Transmission Date: 20060501
  Serious: Yes (Hospitalization, Other)
  Sender: FDA-Public Use
  Company Number: 2005165412

PATIENT
  Age: 56 Year
  Sex: Male

DRUGS (4)
  1. VIAGRA [Suspect]
     Indication: ERECTILE DYSFUNCTION
     Dates: start: 20050101, end: 20050701
  2. VALIUM [Concomitant]
  3. PERCOCET [Concomitant]
  4. LIDOCAINE [Concomitant]

REACTIONS (8)
  - CORONARY ARTERY OCCLUSION [None]
  - FALL [None]
  - LOSS OF CONSCIOUSNESS [None]
  - MYOCARDIAL INFARCTION [None]
  - NERVE INJURY [None]
  - POST PROCEDURAL COMPLICATION [None]
  - SCAR [None]
  - WEIGHT DECREASED [None]
